FAERS Safety Report 7693944-9 (Version None)
Quarter: 2011Q3

REPORT INFORMATION
  Report Type: 
  Country: None (occurrence: None)
  Receive Date: 20110819
  Receipt Date: 20110816
  Transmission Date: 20111222
  Serious: Yes (Hospitalization)
  Sender: FDA-Public Use
  Company Number: DE-ABBOTT-11P-062-0847424-00

PATIENT
  Age: 46 Year
  Sex: Female

DRUGS (10)
  1. HUMIRA [Suspect]
     Indication: RHEUMATOID ARTHRITIS
     Dates: start: 20050901
  2. METHOTREXATE [Concomitant]
     Dates: start: 20100301
  3. METHOTREXATE [Concomitant]
     Indication: PRODUCT USED FOR UNKNOWN INDICATION
     Dates: start: 20031209
  4. METHOTREXATE [Concomitant]
     Dates: start: 20101119
  5. INFLIXIMAB [Concomitant]
     Dosage: CUMULATED 400 MG
     Dates: start: 20040413
  6. INFLIXIMAB [Concomitant]
     Indication: PRODUCT USED FOR UNKNOWN INDICATION
     Dates: start: 20040101
  7. INFLIXIMAB [Concomitant]
     Dosage: 300 MG, CUMULATED 600 MG
     Dates: start: 20050113
  8. METHOTREXATE [Concomitant]
     Dates: start: 20070117
  9. INFLIXIMAB [Concomitant]
     Dosage: 300 MG, CUMULATED 900 MG
     Dates: start: 20050718
  10. INFLIXIMAB [Concomitant]
     Dosage: 300 MG, CUMULATED 300 MG
     Dates: start: 20040719

REACTIONS (1)
  - FACIAL PARESIS [None]
